FAERS Safety Report 20037943 (Version 6)
Quarter: 2024Q1

REPORT INFORMATION
  Report Type: Report from Study
  Country: IT (occurrence: IT)
  Receive Date: 20211105
  Receipt Date: 20240319
  Transmission Date: 20240410
  Serious: Yes (Other)
  Sender: FDA-Public Use
  Company Number: IT-ROCHE-2816936

PATIENT
  Age: 62 Year
  Sex: Male

DRUGS (16)
  1. DOXORUBICIN [Suspect]
     Active Substance: DOXORUBICIN
     Indication: Lymphoma
     Dosage: 100 MILLIGRAM, Q21D (SIXTH CYCLE OF CHOP ON 06/AUG/2020)
     Route: 042
     Dates: start: 20200806
  2. DOXORUBICIN [Suspect]
     Active Substance: DOXORUBICIN
     Dosage: 89 MILLIGRAM (28 DAYS BETWEEN C1 AND C2, FROM C2
     Route: 065
     Dates: start: 20200806
  3. PREDNISONE [Suspect]
     Active Substance: PREDNISONE
     Indication: Lymphoma
     Dosage: 125 MILLIGRAM (28 DAYS BETWEEN C1 AND C2, FROM
     Route: 065
     Dates: start: 20200806
  4. PREDNISONE [Suspect]
     Active Substance: PREDNISONE
     Dosage: 50 MILLIGRAM
     Route: 065
     Dates: start: 20200807, end: 20200808
  5. PREDNISONE [Suspect]
     Active Substance: PREDNISONE
     Dosage: 25 MILLIGRAM
     Route: 065
     Dates: start: 20200809, end: 20200810
  6. PREDNISONE [Suspect]
     Active Substance: PREDNISONE
     Dosage: 100 MG, QD(6 CYCLE OF CHOP ON 06/AUG/2020PREDNISOLONE 100 MG DAILY ON 06/AUG/2020 UNTIL 10/AUG/2020)
     Route: 042
     Dates: start: 20200806, end: 20200810
  7. PREDNISONE [Suspect]
     Active Substance: PREDNISONE
     Dosage: 100 MILLIGRAM, Q21D (SIXTH CYCLE OF CHOP ON 06/AUG/2020)
     Route: 042
     Dates: start: 20200806
  8. CYCLOPHOSPHAMIDE [Suspect]
     Active Substance: CYCLOPHOSPHAMIDE
     Indication: Lymphoma
     Dosage: UNK
     Route: 065
  9. CYCLOPHOSPHAMIDE [Suspect]
     Active Substance: CYCLOPHOSPHAMIDE
     Dosage: 1340 MILLIGRAM (28 DAYS BETWEEN C1 AND C2
     Route: 065
     Dates: start: 20200806
  10. CYCLOPHOSPHAMIDE [Suspect]
     Active Substance: CYCLOPHOSPHAMIDE
     Dosage: 1500 MILLIGRAM, Q21D (SIXTH CYCLE OF CHOP ON 06/AUG/2020)
     Route: 042
     Dates: start: 20200806
  11. OBINUTUZUMAB [Suspect]
     Active Substance: OBINUTUZUMAB
     Indication: Follicular lymphoma
     Dosage: 1000 MILLIGRAM
     Route: 042
     Dates: start: 20200420
  12. OBINUTUZUMAB [Suspect]
     Active Substance: OBINUTUZUMAB
     Dosage: UNK
     Route: 042
     Dates: start: 20200806
  13. OBINUTUZUMAB [Suspect]
     Active Substance: OBINUTUZUMAB
     Dosage: 1000 MILLIGRAM (NUMBER OF CYCLES RECEIVED: 3
     Route: 042
     Dates: start: 20200813
  14. VINCRISTINE [Suspect]
     Active Substance: VINCRISTINE
     Indication: Lymphoma
     Dosage: 1 MILLIGRAM, CYCLE (28 DAYS BETWEEN C1 AND C2
     Route: 065
     Dates: start: 20200806
  15. VINCRISTINE [Suspect]
     Active Substance: VINCRISTINE
     Dosage: 2 MILLIGRAM, Q21D (SIXTH CYCLE OF CHOP ON 06/AUG/2020)
     Route: 042
     Dates: start: 20200806
  16. Palmidrol;Polydatin [Concomitant]
     Dosage: UNK
     Route: 065
     Dates: start: 20220527

REACTIONS (6)
  - Neutropenia [Recovered/Resolved]
  - Leukopenia [Recovered/Resolved]
  - Anaemia [Recovered/Resolved]
  - Urethritis [Recovered/Resolved]
  - Off label use [Unknown]
  - Product use issue [Unknown]

NARRATIVE: CASE EVENT DATE: 20200817
